FAERS Safety Report 6959355-6 (Version None)
Quarter: 2010Q3

REPORT INFORMATION
  Report Type: 
  Country: None (occurrence: None)
  Receive Date: 20100831
  Receipt Date: 20100831
  Transmission Date: 20110219
  Serious: Yes (Death)
  Sender: FDA-Public Use
  Company Number: None

PATIENT
  Age: 77 Year
  Sex: Female
  Weight: 65.7 kg

DRUGS (1)
  1. CEFEPIME [Suspect]
     Indication: PNEUMONIA
     Dates: start: 20100606, end: 20100608

REACTIONS (3)
  - HYPOXIA [None]
  - MENTAL STATUS CHANGES [None]
  - STATUS EPILEPTICUS [None]
